FAERS Safety Report 7225673-X (Version None)
Quarter: 2011Q1

REPORT INFORMATION
  Report Type: 
  Country: None (occurrence: None)
  Receive Date: 20110113
  Receipt Date: 20110105
  Transmission Date: 20110831
  Serious: Yes (Hospitalization, Other)
  Sender: FDA-Public Use
  Company Number: US-US-EMD SERONO, INC.-230532M09USA

PATIENT
  Sex: Female

DRUGS (2)
  1. REBIF [Suspect]
     Indication: MULTIPLE SCLEROSIS
     Dates: start: 20070314
  2. BIRTH CONTROL PILLS [Suspect]
     Indication: MENSTRUAL DISORDER

REACTIONS (2)
  - HERNIA [None]
  - HEPATIC ADENOMA [None]
